FAERS Safety Report 24799749 (Version 12)
Quarter: 2025Q1

REPORT INFORMATION
  Report Type: Spontaneous
  Country: CA (occurrence: CA)
  Receive Date: 20250102
  Receipt Date: 20250305
  Transmission Date: 20250408
  Serious: Yes (Hospitalization, Other)
  Sender: KARYOPHARM THERAPEUTICS
  Company Number: CA-KARYOPHARM-2025KPT000004

PATIENT

DRUGS (5)
  1. XPOVIO [Suspect]
     Active Substance: SELINEXOR
     Indication: Plasma cell myeloma
     Dosage: 80 MG, WEEKLY
     Route: 048
     Dates: start: 20241220, end: 202501
  2. XPOVIO [Suspect]
     Active Substance: SELINEXOR
     Route: 048
  3. XPOVIO [Suspect]
     Active Substance: SELINEXOR
     Dosage: 100 MG, WEEKLY (ON DAY 1, 8, 15, 22, 29/ WEEKLY FOR 5 WEEKS OF EACH CYCLE)
     Route: 048
     Dates: end: 202502
  4. BORTEZOMIB [Concomitant]
     Active Substance: BORTEZOMIB
  5. DEXAMETHASONE [Concomitant]
     Active Substance: DEXAMETHASONE

REACTIONS (12)
  - Hyperhidrosis [Unknown]
  - Oxygen saturation decreased [Unknown]
  - Plasma cell myeloma [Unknown]
  - Decreased appetite [Unknown]
  - Pneumonia [Unknown]
  - Pyrexia [Unknown]
  - Swelling face [Unknown]
  - Erythema [Recovered/Resolved]
  - Contusion [Recovering/Resolving]
  - Fatigue [Unknown]
  - Weight decreased [Unknown]
  - Diarrhoea [Unknown]

NARRATIVE: CASE EVENT DATE: 20241220
